FAERS Safety Report 4637836-8 (Version None)
Quarter: 2005Q2

REPORT INFORMATION
  Report Type: 
  Country: None (occurrence: None)
  Receive Date: 20050418
  Receipt Date: 20050216
  Transmission Date: 20051028
  Serious: Yes (Disabling)
  Sender: FDA-Public Use
  Company Number: FR-BRISTOL-MYERS SQUIBB COMPANY-12867198

PATIENT
  Age: 38 Year
  Sex: Male
  Weight: 75 kg

DRUGS (4)
  1. REYATAZ [Suspect]
     Route: 048
     Dates: start: 20050124, end: 20050203
  2. VIDEX [Concomitant]
     Dates: start: 20041130
  3. VIREAD [Concomitant]
     Dates: start: 20041130
  4. NORVIR [Concomitant]
     Dates: start: 20041130

REACTIONS (3)
  - ARTHRALGIA [None]
  - MALAISE [None]
  - RASH [None]
